FAERS Safety Report 25497863 (Version 1)
Quarter: 2025Q3

REPORT INFORMATION
  Report Type: Report from Study
  Country: EU (occurrence: EU)
  Receive Date: 20250701
  Receipt Date: 20250701
  Transmission Date: 20251021
  Serious: Yes (Death)
  Sender: ROCHE
  Company Number: EU-ROCHE-10000322006

PATIENT

DRUGS (2)
  1. TOCILIZUMAB [Suspect]
     Active Substance: TOCILIZUMAB
     Indication: COVID-19
     Route: 065
  2. SARILUMAB [Suspect]
     Active Substance: SARILUMAB
     Indication: COVID-19
     Route: 065

REACTIONS (2)
  - Off label use [Unknown]
  - Liver injury [Fatal]
